FAERS Safety Report 17372648 (Version 4)
Quarter: 2021Q1

REPORT INFORMATION
  Report Type: Spontaneous
  Country: US (occurrence: US)
  Receive Date: 20200205
  Receipt Date: 20210127
  Transmission Date: 20210419
  Serious: Yes (Death)
  Sender: FDA-Public Use
  Company Number: US-PFIZER INC-2020040667

PATIENT
  Age: 74 Year
  Sex: Male

DRUGS (19)
  1. BOSULIF [Suspect]
     Active Substance: BOSUTINIB MONOHYDRATE
     Dosage: 2 DF, 2X/DAY (2 TABLET TWICE A DAY)
     Dates: start: 20200201
  2. WARFARIN [Concomitant]
     Active Substance: WARFARIN
     Dosage: 3 MG, DAILY [3 TABLETS DAILY]
  3. FISH OIL [COD?LIVER OIL] [Concomitant]
     Dosage: 1 DF, 1X/DAY [FISH OIL 1 TABLET A DAY]
     Dates: start: 20200101
  4. BOSULIF [Suspect]
     Active Substance: BOSUTINIB MONOHYDRATE
     Indication: LEUKAEMIA
     Dosage: 400 MG, DAILY (2 TABLET MORNING+NIGHT)
     Dates: start: 201912
  5. METOPROLOL. [Concomitant]
     Active Substance: METOPROLOL
     Dosage: 100 MG, 3X/DAY
  6. OMEPRAZOLE. [Concomitant]
     Active Substance: OMEPRAZOLE
     Dosage: 20 MG, DAILY
  7. PROCHLORPERAZINE. [Concomitant]
     Active Substance: PROCHLORPERAZINE
     Dosage: 5 MG, UNK
  8. BOSULIF [Suspect]
     Active Substance: BOSUTINIB MONOHYDRATE
     Indication: CHRONIC MYELOID LEUKAEMIA
     Dosage: 200 MG, 2X/DAY (100 MG TABLET 2 TABLET MORNING+NIGHT)
     Dates: start: 201912
  9. MESALAMINE. [Concomitant]
     Active Substance: MESALAMINE
     Dosage: 1600 MG, 3X/DAY
  10. DIGOXIN. [Concomitant]
     Active Substance: DIGOXIN
     Dosage: 25 MG, UNK
  11. DIGOXIN. [Concomitant]
     Active Substance: DIGOXIN
     Dosage: UNK, DAILY (TAKE 1/2 TABLET DAILY)
  12. B?COMPLEX [VITAMIN B COMPLEX] [Concomitant]
     Dosage: 50 MG, 1X/DAY [50 MG 1 TABLET A DAY]
     Dates: start: 20200101
  13. WARFARIN [Concomitant]
     Active Substance: WARFARIN
     Dosage: 1 MG, UNK
  14. SERTRALINE [Concomitant]
     Active Substance: SERTRALINE HYDROCHLORIDE
     Dosage: 50 MG, DAILY
  15. ZOLPIDEM TARTRATE. [Concomitant]
     Active Substance: ZOLPIDEM TARTRATE
     Dosage: 10 MG, 1X/DAY [10 MG TAKE 1 TABLET AT BEDTIME]
  16. TAMSULOSIN HCL [Concomitant]
     Active Substance: TAMSULOSIN HYDROCHLORIDE
     Dosage: 2 DF, 1X/DAY [0.4 TAKE 2 CAPSULE AT BEDTIME]
  17. IRON [Concomitant]
     Active Substance: IRON
     Dosage: UNK
     Dates: start: 20200101
  18. ALLOPURINOL. [Concomitant]
     Active Substance: ALLOPURINOL
     Dosage: 100 MG, 1X/DAY
  19. MESALAMINE. [Concomitant]
     Active Substance: MESALAMINE
     Dosage: 800 MG, UNK

REACTIONS (2)
  - Death [Fatal]
  - Feeling abnormal [Recovered/Resolved]

NARRATIVE: CASE EVENT DATE: 201912
